FAERS Safety Report 9225448 (Version 2)
Quarter: 2013Q3

REPORT INFORMATION
  Report Type: Spontaneous
  Country: DK (occurrence: DK)
  Receive Date: 20130411
  Receipt Date: 20130814
  Transmission Date: 20140515
  Serious: Yes (Other)
  Sender: FDA-Public Use
  Company Number: DK-SANOFI-AVENTIS-2013SA035448

PATIENT
  Sex: Female
  Weight: 61 kg

DRUGS (18)
  1. TAXOTERE [Suspect]
     Indication: BREAST CANCER
     Dosage: PHARMACEUTICAL DOSAGE FORM: 377?DOSE GIVEN OVER 60 MIN
     Route: 042
     Dates: start: 20080404, end: 20080404
  2. TAXOTERE [Suspect]
     Indication: BREAST CANCER
     Dosage: PHARMACEUTICAL DOSAGE FORM: 377?DOSE GIVEN OVER 60 MIN
     Route: 042
     Dates: start: 20080404, end: 20080404
  3. TAXOTERE [Suspect]
     Indication: BREAST CANCER
     Dosage: PHARMACEUTICAL DOSAGE FORM: 377?DOSE GIVEN OVER 60 MIN
     Route: 042
     Dates: start: 20080404, end: 20080404
  4. TAXOTERE [Suspect]
     Indication: BREAST CANCER
     Dosage: PHARMACEUTICAL DOSAGE FORM: 377?DOSE GIVEN OVER 60 MIN
     Route: 042
     Dates: start: 20080404, end: 20080404
  5. TAXOTERE [Suspect]
     Indication: BREAST CANCER
     Dosage: PHARMACEUTICAL DOSAGE FORM: 377
     Route: 042
     Dates: start: 20080425, end: 20080425
  6. TAXOTERE [Suspect]
     Indication: BREAST CANCER
     Dosage: PHARMACEUTICAL DOSAGE FORM: 377
     Route: 042
     Dates: start: 20080425, end: 20080425
  7. TAXOTERE [Suspect]
     Indication: BREAST CANCER
     Dosage: PHARMACEUTICAL DOSAGE FORM: 377
     Route: 042
     Dates: start: 20080425, end: 20080425
  8. TAXOTERE [Suspect]
     Indication: BREAST CANCER
     Dosage: PHARMACEUTICAL DOSAGE FORM: 377
     Route: 042
     Dates: start: 20080425, end: 20080425
  9. TAXOTERE [Suspect]
     Indication: BREAST CANCER
     Dosage: PHARMACEUTICAL DOSAGE FORM: 377
     Route: 042
     Dates: start: 20080516, end: 20080516
  10. TAXOTERE [Suspect]
     Indication: BREAST CANCER
     Dosage: PHARMACEUTICAL DOSAGE FORM: 377
     Route: 042
     Dates: start: 20080516, end: 20080516
  11. TAXOTERE [Suspect]
     Indication: BREAST CANCER
     Dosage: PHARMACEUTICAL DOSAGE FORM: 377
     Route: 042
     Dates: start: 20080516, end: 20080516
  12. TAXOTERE [Suspect]
     Indication: BREAST CANCER
     Dosage: PHARMACEUTICAL DOSAGE FORM: 377
     Route: 042
     Dates: start: 20080516, end: 20080516
  13. EPIRUBICIN [Concomitant]
     Indication: ANTIOESTROGEN THERAPY
     Route: 042
     Dates: start: 20080125, end: 20080125
  14. EPIRUBICIN [Concomitant]
     Indication: ANTIOESTROGEN THERAPY
     Route: 042
     Dates: start: 20080222, end: 20080222
  15. EPIRUBICIN [Concomitant]
     Indication: ANTIOESTROGEN THERAPY
     Route: 042
     Dates: start: 20080314, end: 20080314
  16. CYCLOPHOSPHAMIDE [Concomitant]
     Indication: ANTIOESTROGEN THERAPY
     Dates: start: 20080125, end: 20080125
  17. CYCLOPHOSPHAMIDE [Concomitant]
     Indication: ANTIOESTROGEN THERAPY
     Dates: start: 20080222, end: 20080222
  18. CYCLOPHOSPHAMIDE [Concomitant]
     Indication: ANTIOESTROGEN THERAPY
     Dates: start: 20080314, end: 20080314

REACTIONS (7)
  - Sensory loss [Not Recovered/Not Resolved]
  - Neuritis [Not Recovered/Not Resolved]
  - Sensory disturbance [Not Recovered/Not Resolved]
  - Neuralgia [Not Recovered/Not Resolved]
  - Neuropathy peripheral [Not Recovered/Not Resolved]
  - Oedema peripheral [Unknown]
  - Arthralgia [Not Recovered/Not Resolved]
